FAERS Safety Report 21227930 (Version 1)
Quarter: 2022Q3

REPORT INFORMATION
  Report Type: Other
  Country: None (occurrence: IE)
  Receive Date: 20220818
  Receipt Date: 20220818
  Transmission Date: 20221027
  Serious: Yes (Other)
  Sender: FDA-Public Use
  Company Number: IE-Innogenix, LLC-2132010

PATIENT
  Age: 76 Year
  Sex: Male

DRUGS (6)
  1. METRONIDAZOLE [Suspect]
     Active Substance: METRONIDAZOLE
     Indication: Perirectal abscess
     Route: 048
  2. CEFUROXIME [Suspect]
     Active Substance: CEFUROXIME
     Route: 042
  3. DAPTOMYCIN [Suspect]
     Active Substance: DAPTOMYCIN
     Route: 042
  4. ASPIRIN [Concomitant]
     Active Substance: ASPIRIN
  5. LANSOPRAZOLE [Concomitant]
     Active Substance: LANSOPRAZOLE
  6. FINASTERIDE [Concomitant]
     Active Substance: FINASTERIDE

REACTIONS (1)
  - Metabolic encephalopathy [Recovered/Resolved]
